FAERS Safety Report 22186885 (Version 4)
Quarter: 2023Q4

REPORT INFORMATION
  Report Type: Report from Study
  Country: IL (occurrence: IL)
  Receive Date: 20230407
  Receipt Date: 20231020
  Transmission Date: 20240110
  Serious: Yes (Hospitalization)
  Sender: FDA-Public Use
  Company Number: IL-TEVAIL-2023-IL-2873088

PATIENT
  Age: 51 Year
  Sex: Female
  Weight: 54 kg

DRUGS (21)
  1. LENALIDOMIDE [Suspect]
     Active Substance: LENALIDOMIDE
     Indication: Follicular lymphoma
     Dosage: 20 MILLIGRAM DAILY; 1-21 OF 28 DAY CYCLE
     Route: 048
     Dates: start: 20230313, end: 20230430
  2. LENALIDOMIDE [Suspect]
     Active Substance: LENALIDOMIDE
     Dosage: 15 MILLIGRAM DAILY;
     Route: 048
     Dates: start: 20230510
  3. EPCORITAMAB [Suspect]
     Active Substance: EPCORITAMAB
     Indication: Follicular lymphoma
     Dosage: 0.16 MG PRIMING DOSE; C1, D1
     Route: 058
     Dates: start: 20230313, end: 20230313
  4. EPCORITAMAB [Suspect]
     Active Substance: EPCORITAMAB
     Dosage: 0.16 MG PRIMING DOSE; C1, D1
     Route: 058
     Dates: start: 20230320, end: 20230320
  5. EPCORITAMAB [Suspect]
     Active Substance: EPCORITAMAB
     Dosage: 0.16 MG PRIMING DOSE; C1, D1
     Route: 058
     Dates: start: 20230410, end: 20230410
  6. EPCORITAMAB [Suspect]
     Active Substance: EPCORITAMAB
     Dosage: 0.16 MG PRIMING DOSE; C1, D1
     Route: 058
     Dates: start: 20230417, end: 20230417
  7. EPCORITAMAB [Suspect]
     Active Substance: EPCORITAMAB
     Dosage: 0.16 MG PRIMING DOSE; C1, D1
     Route: 058
     Dates: start: 20230424
  8. RITUXIMAB [Suspect]
     Active Substance: RITUXIMAB
     Indication: Follicular lymphoma
     Dosage: 375 MG/M2, EVERY 1 WEEKS
     Route: 042
     Dates: start: 20230313
  9. PREDNISONE [Concomitant]
     Active Substance: PREDNISONE
     Indication: Prophylaxis
     Dosage: 100 MILLIGRAM DAILY; 4 CONSECUTIVE DAYS AFTER STUDY DRUG ADMINISTRATION
     Route: 065
     Dates: start: 20230313, end: 20230316
  10. PREDNISONE [Concomitant]
     Active Substance: PREDNISONE
     Dosage: 100 MILLIGRAM DAILY;
     Route: 065
     Dates: start: 20230320, end: 20230321
  11. PREDNISONE [Concomitant]
     Active Substance: PREDNISONE
     Dosage: 80 MILLIGRAM DAILY;
     Route: 065
     Dates: start: 20230322, end: 20230323
  12. PREDNISONE [Concomitant]
     Active Substance: PREDNISONE
     Dosage: 20 MILLIGRAM DAILY;
     Route: 065
     Dates: start: 20230324, end: 20230324
  13. PREDNISONE [Concomitant]
     Active Substance: PREDNISONE
     Dosage: 50 MILLIGRAM DAILY;
     Route: 065
     Dates: start: 20230325, end: 20230325
  14. PREDNISONE [Concomitant]
     Active Substance: PREDNISONE
     Dosage: 30 MILLIGRAM DAILY;
     Route: 065
     Dates: start: 20230326, end: 20230326
  15. PREDNISONE [Concomitant]
     Active Substance: PREDNISONE
     Route: 065
     Dates: start: 20230328, end: 20230330
  16. PREDNISONE [Concomitant]
     Active Substance: PREDNISONE
     Dosage: 100 MILLIGRAM DAILY;
     Route: 065
     Dates: start: 20230410, end: 20230410
  17. PREDNISONE [Concomitant]
     Active Substance: PREDNISONE
     Dosage: 100 MILLIGRAM DAILY;
     Route: 065
     Dates: start: 20230417, end: 20230420
  18. PREDNISONE [Concomitant]
     Active Substance: PREDNISONE
     Dosage: 100 MILLIGRAM DAILY;
     Route: 065
     Dates: start: 20230424, end: 20230427
  19. CIPRALEX [Concomitant]
     Active Substance: ESCITALOPRAM OXALATE
     Indication: Anxiety
     Route: 065
     Dates: start: 1998
  20. OMEPRAZOLE [Concomitant]
     Active Substance: OMEPRAZOLE
     Indication: Abdominal pain upper
     Dosage: AS NECESSARY
     Route: 065
     Dates: start: 202301
  21. PREDNISONE [Concomitant]
     Active Substance: PREDNISONE
     Indication: Prophylaxis
     Dosage: 100 MILLIGRAM DAILY;
     Dates: start: 20230501, end: 20230504

REACTIONS (2)
  - Cytokine release syndrome [Recovered/Resolved]
  - Pyrexia [Unknown]

NARRATIVE: CASE EVENT DATE: 20230317
